FAERS Safety Report 4955057-6 (Version None)
Quarter: 2006Q1

REPORT INFORMATION
  Report Type: 
  Country: None (occurrence: None)
  Receive Date: 20060322
  Receipt Date: 20060313
  Transmission Date: 20060701
  Serious: Yes (Life-Threatening, Hospitalization, Other)
  Sender: FDA-Public Use
  Company Number: USA0509109544

PATIENT
  Age: 15 Year
  Sex: Male
  Weight: 67.1 kg

DRUGS (2)
  1. STRATTERA [Suspect]
     Indication: ATTENTION DEFICIT/HYPERACTIVITY DISORDER
     Dates: start: 20050801, end: 20050901
  2. TRILEPTAL [Concomitant]

REACTIONS (6)
  - HEADACHE [None]
  - IRRITABILITY [None]
  - NAUSEA [None]
  - OVERDOSE [None]
  - STOMACH DISCOMFORT [None]
  - SUICIDE ATTEMPT [None]
